FAERS Safety Report 8024721-7 (Version None)
Quarter: 2012Q1

REPORT INFORMATION
  Report Type: 
  Country: None (occurrence: None)
  Receive Date: 20120105
  Receipt Date: 20111227
  Transmission Date: 20120608
  Serious: Yes (Death)
  Sender: FDA-Public Use
  Company Number: US-JNJFOC-20111212670

PATIENT
  Age: 65 Year
  Sex: Male

DRUGS (3)
  1. CYCLOBENZAPRINE [Suspect]
     Indication: ILL-DEFINED DISORDER
     Route: 048
  2. METHADONE HCL [Suspect]
     Indication: ILL-DEFINED DISORDER
     Route: 048
  3. DIAZEPAM [Suspect]
     Indication: ILL-DEFINED DISORDER
     Route: 048

REACTIONS (3)
  - DRUG ABUSE [None]
  - TOXICITY TO VARIOUS AGENTS [None]
  - CARDIO-RESPIRATORY ARREST [None]
